FAERS Safety Report 9636788 (Version 1)
Quarter: 2013Q4

REPORT INFORMATION
  Report Type: Spontaneous
  Country: HR (occurrence: HR)
  Receive Date: 20131022
  Receipt Date: 20131022
  Transmission Date: 20140711
  Serious: Yes (Death)
  Sender: FDA-Public Use
  Company Number: HR-009507513-1310HRV008063

PATIENT
  Sex: 0

DRUGS (1)
  1. INEGY [Suspect]
     Dosage: UNK
     Route: 048
     Dates: start: 2012

REACTIONS (1)
  - Pulmonary oedema [Fatal]
